FAERS Safety Report 14245956 (Version 1)
Quarter: 2017Q4

REPORT INFORMATION
  Report Type: Spontaneous
  Country: FR (occurrence: FR)
  Receive Date: 20171204
  Receipt Date: 20171204
  Transmission Date: 20180321
  Serious: Yes (Other)
  Sender: FDA-Public Use
  Company Number: FR-MERCK KGAA-2036529

PATIENT
  Age: 59 Year
  Sex: Female

DRUGS (1)
  1. NOVOTHYROX [Suspect]
     Active Substance: LEVOTHYROXINE SODIUM
     Indication: PRODUCT USED FOR UNKNOWN INDICATION

REACTIONS (20)
  - Dysstasia [None]
  - Impaired driving ability [None]
  - Loss of libido [None]
  - Memory impairment [None]
  - Vision blurred [None]
  - Irritability [None]
  - Apathy [None]
  - Malaise [None]
  - Suicidal ideation [None]
  - Disturbance in attention [None]
  - Feeling abnormal [None]
  - Crying [None]
  - Anxiety [None]
  - Social avoidant behaviour [None]
  - Mood altered [None]
  - Vertigo [None]
  - Fatigue [None]
  - Depressed mood [None]
  - Asthenia [None]
  - Muscle spasms [None]

NARRATIVE: CASE EVENT DATE: 20170715
